FAERS Safety Report 23787828 (Version 1)
Quarter: 2024Q2

REPORT INFORMATION
  Report Type: Spontaneous
  Country: GB (occurrence: GB)
  Receive Date: 20240426
  Receipt Date: 20240426
  Transmission Date: 20240715
  Serious: Yes (Other)
  Sender: FDA-Public Use
  Company Number: GB-MYLANLABS-2024M1029382

PATIENT
  Sex: Male

DRUGS (1)
  1. CLOZARIL [Suspect]
     Active Substance: CLOZAPINE
     Indication: Schizophrenia
     Dosage: 50 MILLIGRAM, UNK
     Route: 048
     Dates: start: 20090615, end: 20240205

REACTIONS (2)
  - Cardiomyopathy [Unknown]
  - Cardiomyopathy alcoholic [Recovering/Resolving]

NARRATIVE: CASE EVENT DATE: 20231214
